FAERS Safety Report 6956255-2 (Version None)
Quarter: 2010Q3

REPORT INFORMATION
  Report Type: 
  Country: None (occurrence: None)
  Receive Date: 20100830
  Receipt Date: 20100826
  Transmission Date: 20110219
  Serious: Yes (Other)
  Sender: FDA-Public Use
  Company Number: A0878029A

PATIENT
  Age: 70 Year
  Sex: Male

DRUGS (1)
  1. NICOTINE [Suspect]
     Indication: SMOKING CESSATION THERAPY
     Route: 062

REACTIONS (2)
  - ABNORMAL DREAMS [None]
  - HALLUCINATION [None]
